FAERS Safety Report 4571195-4 (Version None)
Quarter: 2005Q1

REPORT INFORMATION
  Report Type: 
  Country: None (occurrence: None)
  Receive Date: 20050202
  Receipt Date: 20050118
  Transmission Date: 20050727
  Serious: No
  Sender: FDA-Public Use
  Company Number: 9834

PATIENT
  Age: 26 Year
  Sex: Female

DRUGS (7)
  1. METHOTREXATE [Suspect]
     Indication: BONE SARCOMA
     Dosage: 95.2 G TOTAL, IV
     Route: 042
     Dates: start: 20040628, end: 20041025
  2. LEUCOVORIN CALCIUM [Concomitant]
  3. ONDANSETRON HYDROCHLORIDE [Concomitant]
  4. DEXAMETHASONE SODIUM PHOSPHATE [Concomitant]
  5. ACETAZOLAMIDE SODIUM [Concomitant]
  6. CIMETIDINE [Concomitant]
  7. MINOPHAGEN C [Concomitant]

REACTIONS (3)
  - HYPOAESTHESIA [None]
  - PARALYSIS [None]
  - QUADRIPLEGIA [None]
